FAERS Safety Report 5726642-9 (Version None)
Quarter: 2008Q2

REPORT INFORMATION
  Report Type: 
  Country: None (occurrence: None)
  Receive Date: 20080502
  Receipt Date: 20080423
  Transmission Date: 20081010
  Serious: Yes (Hospitalization, Other)
  Sender: FDA-Public Use
  Company Number: US-ABBOTT-08P-163-0448842-00

PATIENT
  Sex: Female
  Weight: 111.23 kg

DRUGS (24)
  1. HUMIRA [Suspect]
     Indication: CROHN'S DISEASE
     Route: 058
     Dates: start: 20070701, end: 20071201
  2. HUMIRA [Suspect]
     Dosage: OFF HUMIRA IN PRE FOR SURGERY AND AFTER SURGERY
     Dates: start: 20080301
  3. HUMIRA [Suspect]
     Dates: start: 20080301
  4. ERGOCALCIFEROL [Concomitant]
     Indication: VITAMIN SUPPLEMENTATION
     Route: 048
  5. DULOXETINE HYDROCHLORIDE [Concomitant]
     Indication: DEPRESSION
     Dosage: 60 MG DAILY
     Route: 048
  6. DIGOXIN [Concomitant]
     Indication: CARDIOVASCULAR EVENT PROPHYLAXIS
     Route: 048
  7. SPIRONOLACTONE [Concomitant]
     Indication: CARDIOVASCULAR EVENT PROPHYLAXIS
     Route: 048
  8. SPIRONOLACTONE [Concomitant]
     Indication: FLUID RETENTION
  9. LISINOPRIL [Concomitant]
     Indication: CARDIOVASCULAR EVENT PROPHYLAXIS
     Route: 048
  10. IRON [Concomitant]
     Indication: MINERAL SUPPLEMENTATION
     Route: 048
  11. BUPROPION HCL [Concomitant]
     Indication: DEPRESSION
     Route: 048
  12. MONTELUKAST SODIUM [Concomitant]
     Indication: RESPIRATORY DISORDER
     Route: 048
  13. CARVEDILOL [Concomitant]
     Indication: CARDIOVASCULAR EVENT PROPHYLAXIS
     Route: 048
  14. PREGABALIN [Concomitant]
     Indication: PAIN
     Route: 048
  15. POTASSIUM CHLORIDE [Concomitant]
     Indication: MINERAL SUPPLEMENTATION
     Dosage: TWO 20 MILLIEQUIVALENT TABS, TWICE DAILY
     Route: 048
  16. FUROSEMIDE [Concomitant]
     Indication: CARDIOVASCULAR EVENT PROPHYLAXIS
     Route: 048
  17. ESOMEPRAZOLE MAGNESIUM [Concomitant]
     Indication: GASTROOESOPHAGEAL REFLUX DISEASE
     Route: 048
  18. AZATHIOPRINE [Concomitant]
     Indication: CROHN'S DISEASE
     Dosage: 2.5 50 MG TABETS DAILY
     Route: 048
  19. MIMOCYLINE [Concomitant]
     Indication: PROPHYLAXIS
     Route: 048
  20. MIMOCYLINE [Concomitant]
     Indication: STAPHYLOCOCCAL INFECTION
  21. VITAMIN CAP [Concomitant]
     Indication: VITAMIN SUPPLEMENTATION
     Route: 048
  22. CALCIUM WITH VITAMIN D [Concomitant]
     Indication: MINERAL SUPPLEMENTATION
     Route: 048
  23. ALPRAZOLAM [Concomitant]
     Indication: ANXIETY
     Route: 048
  24. HYDROMORPHONE HCL [Concomitant]
     Indication: PAIN
     Route: 048

REACTIONS (8)
  - ARTHRODESIS [None]
  - CROHN'S DISEASE [None]
  - DRUG DOSE OMISSION [None]
  - FREQUENT BOWEL MOVEMENTS [None]
  - ORAL INTAKE REDUCED [None]
  - RENAL FAILURE ACUTE [None]
  - STAPHYLOCOCCAL INFECTION [None]
  - VOMITING [None]
